FAERS Safety Report 9539237 (Version 1)
Quarter: 2013Q3

REPORT INFORMATION
  Report Type: Spontaneous
  Country: FR (occurrence: FR)
  Receive Date: 20130920
  Receipt Date: 20130920
  Transmission Date: 20140515
  Serious: Yes (Hospitalization)
  Sender: FDA-Public Use
  Company Number: FR-SANOFI-AVENTIS-2013SA091243

PATIENT
  Age: 69 Year
  Sex: Female

DRUGS (13)
  1. LASILIX [Suspect]
     Indication: PRODUCT USED FOR UNKNOWN INDICATION
     Route: 048
     Dates: end: 20130314
  2. BACTRIM [Suspect]
     Indication: ARTHRITIS INFECTIVE
     Route: 048
     Dates: start: 20130207, end: 20130314
  3. MOBIC [Suspect]
     Indication: PRODUCT USED FOR UNKNOWN INDICATION
     Route: 048
     Dates: end: 20130314
  4. GAVISCON [Suspect]
     Indication: PRODUCT USED FOR UNKNOWN INDICATION
     Route: 048
     Dates: end: 20130314
  5. ARAVA [Concomitant]
     Dates: end: 20130314
  6. CORTANCYL [Concomitant]
     Dates: end: 20130314
  7. APROVEL [Concomitant]
     Dates: end: 20130314
  8. FLECTOR [Concomitant]
     Dates: end: 20130314
  9. LAMALINE [Concomitant]
  10. MOPRAL [Concomitant]
  11. EUPRESSYL [Concomitant]
  12. OROCAL D(3) [Concomitant]
  13. KALEORID [Concomitant]

REACTIONS (4)
  - Meningitis [Recovered/Resolved]
  - Confusional state [Recovered/Resolved]
  - Headache [Recovered/Resolved]
  - Pyrexia [Recovered/Resolved]
